FAERS Safety Report 6658687-9 (Version None)
Quarter: 2010Q1

REPORT INFORMATION
  Report Type: 
  Country: None (occurrence: None)
  Receive Date: 20100330
  Receipt Date: 20100317
  Transmission Date: 20100710
  Serious: Yes (Other)
  Sender: FDA-Public Use
  Company Number: PHHY2010US13764

PATIENT
  Sex: Female
  Weight: 68.027 kg

DRUGS (8)
  1. GLEEVEC [Interacting]
     Dosage: 400 MG DAILY
     Dates: start: 20070802
  2. ASPIRIN [Suspect]
  3. TEA, GREEN [Interacting]
     Route: 048
  4. HERBAL POLLEN NOS [Interacting]
     Route: 048
  5. ROYAL JELLY [Interacting]
     Route: 048
  6. MULTI-VITAMINS [Concomitant]
  7. CALCIUM [Concomitant]
  8. VITAMIN D [Concomitant]

REACTIONS (17)
  - ANAEMIA [None]
  - BLOOD IRON DECREASED [None]
  - BLOOD LACTATE DEHYDROGENASE INCREASED [None]
  - DRUG INTERACTION [None]
  - DYSPNOEA [None]
  - EOSINOPHIL COUNT INCREASED [None]
  - FATIGUE [None]
  - GOITRE [None]
  - HAEMOGLOBIN DECREASED [None]
  - LOCAL SWELLING [None]
  - MEAN CELL HAEMOGLOBIN CONCENTRATION DECREASED [None]
  - MEAN CELL HAEMOGLOBIN DECREASED [None]
  - MONOCYTE COUNT INCREASED [None]
  - PLATELET COUNT DECREASED [None]
  - RED CELL DISTRIBUTION WIDTH INCREASED [None]
  - WHITE BLOOD CELL COUNT DECREASED [None]
  - WISDOM TEETH REMOVAL [None]
